FAERS Safety Report 9000588 (Version 1)
Quarter: 2012Q4

REPORT INFORMATION
  Report Type: Spontaneous
  Country: DK (occurrence: None)
  Receive Date: 20121221
  Receipt Date: 20121221
  Transmission Date: 20130627
  Serious: Yes (Other)
  Sender: FDA-Public Use
  Company Number: 2012MA014224

PATIENT
  Age: 33 Year
  Sex: Female

DRUGS (1)
  1. GEMCITABINE HCL [Suspect]
     Indication: SARCOMA
     Route: 042
     Dates: start: 20121018, end: 20121018

REACTIONS (1)
  - Convulsion [None]
